FAERS Safety Report 17479315 (Version 1)
Quarter: 2020Q1

REPORT INFORMATION
  Report Type: Spontaneous
  Country: US (occurrence: US)
  Receive Date: 20200228
  Receipt Date: 20200228
  Transmission Date: 20200409
  Serious: No
  Sender: FDA-Public Use
  Company Number: US-EMD SERONO-9146787

PATIENT
  Age: 71 Year
  Sex: Female

DRUGS (2)
  1. BAVENCIO [Suspect]
     Active Substance: AVELUMAB
     Indication: METASTATIC RENAL CELL CARCINOMA
  2. INLYTA [Suspect]
     Active Substance: AXITINIB
     Indication: METASTATIC RENAL CELL CARCINOMA

REACTIONS (3)
  - Diarrhoea [Unknown]
  - Disease progression [Unknown]
  - Pain [Unknown]

NARRATIVE: CASE EVENT DATE: 202001
